FAERS Safety Report 16600183 (Version 1)
Quarter: 2019Q3

REPORT INFORMATION
  Report Type: Spontaneous
  Country: SE (occurrence: SE)
  Receive Date: 20190720
  Receipt Date: 20190720
  Transmission Date: 20191004
  Serious: Yes (Hospitalization, Other)
  Sender: FDA-Public Use
  Company Number: SE-MACLEODS PHARMACEUTICALS US LTD-MAC2019022152

PATIENT

DRUGS (1)
  1. QUETIAPINE. [Suspect]
     Active Substance: QUETIAPINE
     Indication: ANXIETY
     Dosage: UNK
     Route: 065

REACTIONS (1)
  - Thrombotic thrombocytopenic purpura [Recovered/Resolved]
